FAERS Safety Report 7353491-0 (Version None)
Quarter: 2011Q1

REPORT INFORMATION
  Report Type: 
  Country: None (occurrence: None)
  Receive Date: 20110307
  Receipt Date: 20100517
  Transmission Date: 20110831
  Serious: No
  Sender: FDA-Public Use
  Company Number: AEUSA201000178

PATIENT
  Age: 63 Year
  Sex: Male
  Weight: 81.6475 kg

DRUGS (6)
  1. FORADIL /00958001/ [Concomitant]
  2. PROLASTIN [Suspect]
     Indication: ALPHA-1 ANTI-TRYPSIN DEFICIENCY
     Dosage: ;QW; IV
     Route: 042
     Dates: start: 19910501, end: 20100501
  3. SALBUTAMOL W/ IPRATROPIUM [Concomitant]
  4. NASONEX [Concomitant]
  5. SUDAFED /00076302/ [Concomitant]
  6. VERAPAMIL [Concomitant]

REACTIONS (2)
  - BLADDER DISORDER [None]
  - POLLAKIURIA [None]
